FAERS Safety Report 10583569 (Version 1)
Quarter: 2014Q4

REPORT INFORMATION
  Report Type: Spontaneous
  Country: US (occurrence: None)
  Receive Date: 20141112
  Receipt Date: 20141112
  Transmission Date: 20150529
  Serious: Yes (Other)
  Sender: FDA-Public Use
  Company Number: 201411011

PATIENT
  Sex: Male

DRUGS (3)
  1. TESTIM [Suspect]
     Active Substance: TESTOSTERONE
     Indication: BLOOD TESTOSTERONE DECREASED
     Dosage: TRANSDERMAL.
     Dates: start: 200712
  2. ANDROGEL [Suspect]
     Active Substance: TESTOSTERONE
     Indication: BLOOD TESTOSTERONE DECREASED
     Dates: start: 20120301
  3. TESTIM [Suspect]
     Active Substance: TESTOSTERONE
     Indication: HYPOGONADISM
     Dosage: TRANSDERMAL.
     Dates: start: 200712

REACTIONS (5)
  - Pain [None]
  - Multiple injuries [None]
  - Emotional distress [None]
  - Pulmonary embolism [None]
  - Sexual relationship change [None]

NARRATIVE: CASE EVENT DATE: 20121102
